FAERS Safety Report 10037599 (Version 1)
Quarter: 2014Q1

REPORT INFORMATION
  Report Type: Spontaneous
  Country: US (occurrence: US)
  Receive Date: 20140326
  Receipt Date: 20140326
  Transmission Date: 20141002
  Serious: No
  Sender: FDA-Public Use
  Company Number: US-009507513-1403USA011837

PATIENT
  Sex: Female
  Weight: 59.41 kg

DRUGS (1)
  1. NEXPLANON [Suspect]
     Dosage: 68 MG, 1 STANDARD PACKAGE OF APPLI OF 1
     Route: 059
     Dates: start: 20121008

REACTIONS (4)
  - Skin irritation [Not Recovered/Not Resolved]
  - Discomfort [Not Recovered/Not Resolved]
  - Device breakage [Not Recovered/Not Resolved]
  - Product quality issue [Unknown]
